FAERS Safety Report 9235503 (Version 3)
Quarter: 2014Q1

REPORT INFORMATION
  Report Type: Spontaneous
  Country: US (occurrence: None)
  Receive Date: 20121031
  Receipt Date: 20130724
  Transmission Date: 20141002
  Serious: Yes (Other)
  Sender: FDA-Public Use
  Company Number: PHEH2012US015688

PATIENT
  Age: 50 Year
  Sex: Female

DRUGS (2)
  1. GILENYA [Suspect]
     Indication: MULTIPLE SCLEROSIS
     Dosage: 0.5 MG, QD, ORAL
     Route: 048
     Dates: start: 20110405, end: 20120502
  2. ACTHAR (CORTICOTROPIN) INJECTION [Concomitant]

REACTIONS (4)
  - Herpes zoster [None]
  - Rash [None]
  - Urinary tract infection [None]
  - Adverse event [None]
